FAERS Safety Report 4668908-X (Version None)
Quarter: 2005Q2

REPORT INFORMATION
  Report Type: 
  Country: None (occurrence: None)
  Receive Date: 20050523
  Receipt Date: 20041021
  Transmission Date: 20051028
  Serious: Yes (Other)
  Sender: FDA-Public Use
  Company Number: PHBS2004BR13973

PATIENT
  Age: 60 Year
  Sex: Male

DRUGS (1)
  1. ZOMETA [Suspect]
     Indication: PROSTATE CANCER
     Dosage: 4 MG, QMO
     Route: 042
     Dates: start: 20030701

REACTIONS (7)
  - ASEPTIC NECROSIS BONE [None]
  - BONE TRIMMING [None]
  - INJURY [None]
  - JAW FRACTURE [None]
  - PERIODONTAL DISEASE [None]
  - PROSTHESIS USER [None]
  - TOOTH EXTRACTION [None]
